FAERS Safety Report 18458080 (Version 1)
Quarter: 2020Q4

REPORT INFORMATION
  Report Type: Spontaneous
  Country: US (occurrence: US)
  Receive Date: 20201103
  Receipt Date: 20201103
  Transmission Date: 20210114
  Serious: No
  Sender: FDA-Public Use
  Company Number: US-FARMAPROD-202009-1211

PATIENT
  Sex: Male

DRUGS (6)
  1. PREDNISOLONE/NEPAFENAC [Concomitant]
  2. FLOMAX [Concomitant]
     Active Substance: TAMSULOSIN HYDROCHLORIDE
  3. OXERVATE [Suspect]
     Active Substance: CENEGERMIN-BKBJ
     Indication: CORNEAL OEDEMA
     Route: 047
     Dates: start: 20200810
  4. ACCUPRIL [Concomitant]
     Active Substance: QUINAPRIL HYDROCHLORIDE
  5. BRIMONIDINE/DORZOLAMIDE [Concomitant]
  6. BETIMOL [Concomitant]
     Active Substance: TIMOLOL

REACTIONS (6)
  - Therapy interrupted [Unknown]
  - Eye pain [Unknown]
  - Eyelid irritation [Unknown]
  - Photophobia [Unknown]
  - Sinus disorder [Unknown]
  - Foreign body sensation in eyes [Unknown]
